FAERS Safety Report 4461242-2 (Version None)
Quarter: 2004Q3

REPORT INFORMATION
  Report Type: 
  Country: None (occurrence: None)
  Receive Date: 20040928
  Receipt Date: 20040414
  Transmission Date: 20050211
  Serious: Yes (Other)
  Sender: FDA-Public Use
  Company Number: GB-ROCHE-364457

PATIENT
  Age: 29 Year
  Sex: Female
  Weight: 62.9 kg

DRUGS (2)
  1. ROACCUTANE [Suspect]
     Indication: ACNE
     Route: 048
     Dates: start: 20040201, end: 20040308
  2. ROACCUTANE [Suspect]
     Route: 048
     Dates: start: 20040101, end: 20040201

REACTIONS (3)
  - ANXIETY [None]
  - DEPRESSION [None]
  - MOOD ALTERED [None]
